FAERS Safety Report 6194736-2 (Version None)
Quarter: 2009Q2

REPORT INFORMATION
  Report Type: 
  Country: None (occurrence: None)
  Receive Date: 20090515
  Receipt Date: 20090515
  Transmission Date: 20091009
  Serious: Yes (Life-Threatening, Hospitalization)
  Sender: FDA-Public Use
  Company Number: None

PATIENT
  Age: 73 Year
  Sex: Female
  Weight: 68.9 kg

DRUGS (1)
  1. NALOXONE HYDROCHLORIDE [Suspect]
     Indication: SEDATION
     Dosage: 0.4MG 1 TIME INJ
     Dates: start: 20090514, end: 20090514

REACTIONS (3)
  - DYSPNOEA [None]
  - INCREASED BRONCHIAL SECRETION [None]
  - RALES [None]
